FAERS Safety Report 8360664-7 (Version None)
Quarter: 2012Q2

REPORT INFORMATION
  Report Type: 
  Country: None (occurrence: None)
  Receive Date: 20120515
  Receipt Date: 20120507
  Transmission Date: 20120825
  Serious: Yes (Hospitalization, Other)
  Sender: FDA-Public Use
  Company Number: KR-PFIZER INC-2012104043

PATIENT
  Age: 68 Year
  Sex: Male

DRUGS (5)
  1. DIAMOX [Suspect]
     Indication: INTRAOCULAR PRESSURE TEST ABNORMAL
     Dosage: ^1T^ FOUR TIMES DAILY
  2. XALATAN [Suspect]
     Indication: INTRAOCULAR PRESSURE TEST ABNORMAL
     Dosage: UNK
  3. ALPHAGAN [Suspect]
     Indication: INTRAOCULAR PRESSURE TEST ABNORMAL
     Dosage: UNK
  4. COSOPT [Suspect]
     Indication: INTRAOCULAR PRESSURE TEST ABNORMAL
     Dosage: UNK
  5. ACETAZOLAMIDE [Suspect]
     Dosage: 250 MG TABLET, ONE TAB 4X/DAY

REACTIONS (5)
  - EYE OEDEMA [None]
  - INTRAOCULAR PRESSURE TEST ABNORMAL [None]
  - HEADACHE [None]
  - CORNEAL OPACITY [None]
  - EYE PAIN [None]
